FAERS Safety Report 10048482 (Version 1)
Quarter: 2014Q1

REPORT INFORMATION
  Report Type: Spontaneous
  Country: IT (occurrence: IT)
  Receive Date: 20140331
  Receipt Date: 20140331
  Transmission Date: 20141002
  Serious: Yes (Hospitalization)
  Sender: FDA-Public Use
  Company Number: IT-TEVA-470773ISR

PATIENT
  Age: 81 Year
  Sex: Female

DRUGS (15)
  1. GLICLAZIDE [Suspect]
     Indication: DIABETES MELLITUS
     Route: 048
     Dates: start: 20090314, end: 20140314
  2. METFORMIN [Suspect]
     Indication: DIABETES MELLITUS
     Route: 048
     Dates: start: 20090314, end: 20140314
  3. LANTUS [Suspect]
     Indication: DIABETES MELLITUS
     Route: 058
     Dates: start: 20110314, end: 20140314
  4. EUTIROX - 50 MICROGRAMMI COMPRESSE [Concomitant]
  5. PANTORC 60 CPR GASTRORESISTENTI 20 MG BLISTER [Concomitant]
     Dosage: GASTRO-RESISTANT TABLET
  6. APROVEL [Concomitant]
  7. ESIDREX [Concomitant]
  8. LASIX [Concomitant]
  9. PLAVIX [Concomitant]
  10. MINITRAN - 10 MG/24 ORE CEROTTI TRANSDERMICI [Concomitant]
  11. ZYLORIC - 300 MG COMPRESSE [Concomitant]
  12. LYRICA [Concomitant]
  13. PERIPLUM [Concomitant]
  14. IVABRADINE [Concomitant]
  15. ATORVASTATIN [Concomitant]

REACTIONS (2)
  - Hypoglycaemia [Recovered/Resolved]
  - Syncope [Recovered/Resolved]
